FAERS Safety Report 6162318-4 (Version None)
Quarter: 2009Q2

REPORT INFORMATION
  Report Type: 
  Country: None (occurrence: None)
  Receive Date: 20090421
  Receipt Date: 20090409
  Transmission Date: 20091009
  Serious: Yes (Death)
  Sender: FDA-Public Use
  Company Number: DE-PFIZER INC-2009195741

PATIENT

DRUGS (3)
  1. SUTENT [Suspect]
     Indication: METASTATIC RENAL CELL CARCINOMA
     Dosage: 50 MG, 1X/DAY
     Route: 048
     Dates: start: 20090227, end: 20090323
  2. PARACODIN N DROPS [Concomitant]
     Indication: COUGH
     Dosage: 25 UNK, 2X/DAY
     Route: 048
     Dates: start: 20090226, end: 20090327
  3. ZOPICLONE [Concomitant]
     Indication: SLEEP DISORDER
     Dosage: 7.5 UNK, UNK
     Route: 048

REACTIONS (2)
  - HEPATIC FAILURE [None]
  - THROMBOCYTOPENIA [None]
